FAERS Safety Report 10253507 (Version 2)
Quarter: 2014Q2

REPORT INFORMATION
  Report Type: Spontaneous
  Country: SE (occurrence: SE)
  Receive Date: 20140623
  Receipt Date: 20140623
  Transmission Date: 20141212
  Serious: Yes (Other)
  Sender: FDA-Public Use
  Company Number: SE-BAYER-2014-057736

PATIENT
  Age: 35 Year
  Sex: Female

DRUGS (5)
  1. JAYDESS [Suspect]
     Indication: CONTRACEPTION
     Dosage: 14 MCG/24HR, CONT
     Route: 015
     Dates: start: 20140204, end: 20140502
  2. CONCERTA [Concomitant]
  3. BUPROPION HYDROCHLORIDE [Concomitant]
  4. MELATONIN [Concomitant]
  5. RITALIN [Concomitant]

REACTIONS (9)
  - Emotional distress [Recovered/Resolved]
  - Premenstrual syndrome [Recovered/Resolved]
  - Delusion [Recovered/Resolved]
  - Emotional disorder [Recovered/Resolved]
  - Anxiety [Recovered/Resolved]
  - Depressed mood [Recovered/Resolved]
  - Jealous delusion [Recovered/Resolved]
  - Cognitive disorder [Recovered/Resolved]
  - Self injurious behaviour [Recovered/Resolved]
